FAERS Safety Report 4641175-9 (Version None)
Quarter: 2005Q1

REPORT INFORMATION
  Report Type: 
  Country: None (occurrence: None)
  Receive Date: 20050322
  Receipt Date: 20050113
  Transmission Date: 20050727
  Serious: Yes (Other)
  Sender: FDA-Public Use
  Company Number: HQWYE636414JAN05

PATIENT
  Sex: Female
  Weight: 123.03 kg

DRUGS (2)
  1. PROTONIX [Suspect]
     Indication: GASTRITIS
     Dosage: 1 TABLET 1X PER 1 DAY, ORAL
     Route: 048
     Dates: start: 20030101, end: 20030501
  2. PROTONIX [Suspect]
     Indication: GASTROOESOPHAGEAL REFLUX DISEASE
     Dosage: 1 TABLET 1X PER 1 DAY, ORAL
     Route: 048
     Dates: start: 20030101, end: 20030501

REACTIONS (1)
  - CONVULSION [None]
